FAERS Safety Report 21507039 (Version 4)
Quarter: 2023Q1

REPORT INFORMATION
  Report Type: Report from Study
  Country: CO (occurrence: CO)
  Receive Date: 20221026
  Receipt Date: 20230119
  Transmission Date: 20230417
  Serious: Yes (Hospitalization)
  Sender: FDA-Public Use
  Company Number: CO-NOVARTISPH-NVSC2022CO238558

PATIENT
  Age: 48 Year
  Sex: Male

DRUGS (1)
  1. ELTROMBOPAG OLAMINE [Suspect]
     Active Substance: ELTROMBOPAG OLAMINE
     Indication: Aplastic anaemia
     Dosage: 50 MG, QD
     Route: 048

REACTIONS (8)
  - Pancreatic enlargement [Unknown]
  - Hepatomegaly [Unknown]
  - Liver disorder [Unknown]
  - Malaise [Unknown]
  - Feeling abnormal [Unknown]
  - Fatigue [Unknown]
  - Abdominal pain upper [Unknown]
  - Arthralgia [Unknown]
